FAERS Safety Report 9784014 (Version 8)
Quarter: 2014Q2

REPORT INFORMATION
  Report Type: Spontaneous
  Country: US (occurrence: US)
  Receive Date: 20131226
  Receipt Date: 20140402
  Transmission Date: 20141212
  Serious: No
  Sender: FDA-Public Use
  Company Number: US-VERTEX PHARMACEUTICALS INC-2013-011937

PATIENT
  Age: 59 Year
  Sex: Female
  Weight: 80.73 kg

DRUGS (12)
  1. INCIVEK [Suspect]
     Indication: HEPATITIS C
     Dosage: 750 MG, TID
     Route: 048
     Dates: start: 20131203, end: 20140225
  2. RIBAVIRIN [Suspect]
     Indication: HEPATITIS C
     Dosage: 2 DF, BID
     Route: 048
     Dates: start: 20131203
  3. RIBAVIRIN [Suspect]
     Dosage: 2 TABS PO IN AM AND 1 TAB PO IN PM
     Route: 048
     Dates: start: 20140120
  4. RIBAVIRIN [Suspect]
     Dosage: 1 DF, BID
     Route: 048
     Dates: start: 201403
  5. PEGASYS [Suspect]
     Indication: HEPATITIS C
     Dosage: 135 ?G, QW
     Route: 058
     Dates: start: 20131203
  6. PEGASYS [Suspect]
     Dosage: 90 ?G, QW
     Route: 058
     Dates: start: 20131217
  7. PEGASYS [Suspect]
     Dosage: 90 ?G, Q 10 DAYS
     Route: 058
  8. DIOVAN [Concomitant]
     Indication: HYPERTENSION
     Route: 048
  9. TAMOXIFEN [Concomitant]
     Indication: BREAST CANCER
     Route: 048
  10. SYNTHROID [Concomitant]
     Indication: THYROID DISORDER
     Route: 048
  11. SYNTHROID [Concomitant]
     Indication: HYPOTHYROIDISM
  12. MULTIVITAMIN [Concomitant]
     Indication: NUTRITIONAL SUPPLEMENTATION
     Dosage: 1 UNK, QD
     Route: 048

REACTIONS (5)
  - Insomnia [Not Recovered/Not Resolved]
  - Weight increased [Not Recovered/Not Resolved]
  - Weight decreased [Not Recovered/Not Resolved]
  - Fatigue [Not Recovered/Not Resolved]
  - White blood cell count decreased [Recovered/Resolved]
